FAERS Safety Report 16368758 (Version 1)
Quarter: 2019Q2

REPORT INFORMATION
  Report Type: Spontaneous
  Country: US (occurrence: US)
  Receive Date: 20190529
  Receipt Date: 20190529
  Transmission Date: 20190711
  Serious: No
  Sender: FDA-Public Use
  Company Number: US-WALMART PREMIER BRANDS OF AMERICA-2067566

PATIENT
  Age: 82 Year
  Sex: Female

DRUGS (4)
  1. METOPROLOL. [Concomitant]
     Active Substance: METOPROLOL
  2. EQUATE- ANTIFUNGAL JOCK ITCH POWDER SPRAY TALC-FREE [Suspect]
     Active Substance: MICONAZOLE NITRATE
     Dates: start: 20190427, end: 20190427
  3. KENALOG-10 [Concomitant]
     Active Substance: TRIAMCINOLONE ACETONIDE
  4. LEVOTHYROXINE. [Concomitant]
     Active Substance: LEVOTHYROXINE

REACTIONS (1)
  - Hypersensitivity [Not Recovered/Not Resolved]

NARRATIVE: CASE EVENT DATE: 20190427
